FAERS Safety Report 21653935 (Version 2)
Quarter: 2024Q1

REPORT INFORMATION
  Report Type: Spontaneous
  Country: NL (occurrence: NL)
  Receive Date: 20221129
  Receipt Date: 20240120
  Transmission Date: 20240410
  Serious: Yes (Life-Threatening, Hospitalization, Other)
  Sender: FDA-Public Use
  Company Number: NL-LRB-00845683

PATIENT
  Age: 18 Year
  Sex: Female
  Weight: 46.6 kg

DRUGS (3)
  1. OLANZAPINE [Suspect]
     Active Substance: OLANZAPINE
     Indication: Mental disorder
     Dosage: 5 MILLIGRAM, TWO TIMES A DAY (1 PIECE 2 TIMES A DAY)
     Route: 065
     Dates: start: 20181222
  2. TEMAZEPAM [Concomitant]
     Active Substance: TEMAZEPAM
     Indication: Product used for unknown indication
     Dosage: 10 MILLIGRAM (CAPSULE)
     Route: 065
  3. POLYETHYLENE GLYCOL 4000 [Concomitant]
     Active Substance: POLYETHYLENE GLYCOL 4000
     Indication: Product used for unknown indication
     Dosage: 10 GRAM (POEDER VOOR DRANK,)
     Route: 065

REACTIONS (4)
  - Seizure [Unknown]
  - Depressed level of consciousness [Unknown]
  - Hypoxia [Unknown]
  - Snoring [Unknown]
